FAERS Safety Report 19001733 (Version 3)
Quarter: 2021Q2

REPORT INFORMATION
  Report Type: Spontaneous
  Country: US (occurrence: US)
  Receive Date: 20210312
  Receipt Date: 20210504
  Transmission Date: 20210717
  Serious: No
  Sender: FDA-Public Use
  Company Number: US-FARMAPROD-202012-1619

PATIENT
  Sex: Female

DRUGS (8)
  1. SUMATRIPTAN. [Concomitant]
     Active Substance: SUMATRIPTAN
  2. OXERVATE [Suspect]
     Active Substance: CENEGERMIN-BKBJ
     Indication: NEUROTROPHIC KERATOPATHY
     Route: 047
     Dates: start: 20201105
  3. ESZOPICLONE. [Concomitant]
     Active Substance: ESZOPICLONE
  4. ESTRADIOL. [Concomitant]
     Active Substance: ESTRADIOL
     Dosage: ONCE WEEKLY
  5. PROGESTERONE. [Concomitant]
     Active Substance: PROGESTERONE
  6. TOPIRAMATE. [Concomitant]
     Active Substance: TOPIRAMATE
     Dosage: SPTINKLE CAPSULES
  7. ALMOTRIPTAN MALATE. [Concomitant]
     Active Substance: ALMOTRIPTAN MALATE
  8. SINGULAIR [Concomitant]
     Active Substance: MONTELUKAST SODIUM

REACTIONS (4)
  - Intercepted medication error [Unknown]
  - Product storage error [Unknown]
  - Product administration error [Unknown]
  - Therapy interrupted [Unknown]
